FAERS Safety Report 8340153 (Version 4)
Quarter: 2014Q2

REPORT INFORMATION
  Report Type: Report from Study
  Country: US (occurrence: US)
  Receive Date: 20120117
  Receipt Date: 20140625
  Transmission Date: 20141212
  Serious: Yes (Death, Hospitalization, Other)
  Sender: FDA-Public Use
  Company Number: US-MPIJNJ-2011-06561

PATIENT
  Age: 64 Year
  Sex: Male
  Weight: 90.7 kg

DRUGS (4)
  1. VELCADE [Suspect]
     Indication: PLASMA CELL MYELOMA
     Dosage: 1.3 MG/M2, ON DAYS 1, 8, 15, 22
     Route: 042
     Dates: start: 20100608, end: 20111108
  2. DEXAMETHASONE [Suspect]
     Indication: PLASMA CELL MYELOMA
     Dosage: 40 MG, ON DAYS 1, 2, 4, 5, 8, 9, 11, 12
     Route: 048
     Dates: start: 20100608
  3. THALIDOMIDE [Concomitant]
     Indication: PLASMA CELL MYELOMA
  4. COUMADIN                           /00014802/ [Concomitant]
     Indication: DEEP VEIN THROMBOSIS

REACTIONS (11)
  - Umbilical hernia, obstructive [Fatal]
  - Small intestinal obstruction [Fatal]
  - Inguinal hernia [Fatal]
  - Abdominal compartment syndrome [Fatal]
  - Intestinal ischaemia [Fatal]
  - Cholecystitis [Fatal]
  - Sleep apnoea syndrome [Fatal]
  - Clostridium difficile colitis [Fatal]
  - Depression [Fatal]
  - Anaemia [Fatal]
  - Sepsis [Fatal]
